FAERS Safety Report 8971578 (Version 2)
Quarter: 2013Q4

REPORT INFORMATION
  Report Type: Spontaneous
  Country: US (occurrence: US)
  Receive Date: 20121217
  Receipt Date: 20131004
  Transmission Date: 20140711
  Serious: No
  Sender: FDA-Public Use
  Company Number: US-B.I. PHARMACEUTICALS,INC./RIDGEFIELD-2012-BI-02804BP

PATIENT
  Sex: Female

DRUGS (2)
  1. COMBIVENT [Suspect]
  2. COMBIVENT MDI [Concomitant]
     Indication: ASTHMA

REACTIONS (2)
  - Drug ineffective [Unknown]
  - Product quality issue [Unknown]
